FAERS Safety Report 6342846-9 (Version None)
Quarter: 2009Q3

REPORT INFORMATION
  Report Type: 
  Country: None (occurrence: None)
  Receive Date: 20090908
  Receipt Date: 20090901
  Transmission Date: 20100115
  Serious: Yes (Life-Threatening, Hospitalization)
  Sender: FDA-Public Use
  Company Number: US-ROCHE-647228

PATIENT
  Sex: Male
  Weight: 94.3 kg

DRUGS (35)
  1. VALCYTE [Suspect]
     Indication: DRUG USE FOR UNKNOWN INDICATION
     Route: 048
     Dates: start: 20090709
  2. VALCYTE [Suspect]
     Route: 048
  3. CELLCEPT [Suspect]
     Route: 065
     Dates: start: 20090719
  4. BACTRIM [Suspect]
     Indication: URINARY TRACT INFECTION
     Route: 048
     Dates: start: 20090709
  5. ALEFACEPT [Suspect]
     Indication: RENAL TRANSPLANT
     Dosage: ROUTE: INTRAVENOUS (NOS)
     Route: 050
     Dates: start: 20090709, end: 20090709
  6. ALEFACEPT [Suspect]
     Dosage: ROUTE: INTRAVENOUS (NOS)
     Route: 050
     Dates: start: 20090712, end: 20090712
  7. ALEFACEPT [Suspect]
     Dosage: ROUTE: SUBCUTANEOUS
     Route: 050
     Dates: start: 20090716, end: 20090719
  8. PLAVIX [Suspect]
     Indication: DRUG USE FOR UNKNOWN INDICATION
     Route: 048
     Dates: start: 20040101
  9. PROGRAF [Suspect]
     Indication: RENAL TRANSPLANT
     Route: 048
     Dates: start: 20090710, end: 20090720
  10. PROGRAF [Suspect]
     Route: 048
     Dates: start: 20090724, end: 20090726
  11. PROGRAF [Suspect]
     Route: 048
     Dates: start: 20090726
  12. SYNTHROID [Suspect]
     Indication: DRUG USE FOR UNKNOWN INDICATION
     Route: 048
  13. HEPARIN [Suspect]
     Indication: DRUG USE FOR UNKNOWN INDICATION
     Dosage: DOSE: 5000 UNITS
     Route: 065
     Dates: start: 20090710, end: 20090714
  14. HEPARIN [Suspect]
     Dosage: DOSE: UID EVERY DAY
     Route: 065
     Dates: start: 20090715, end: 20090715
  15. ASPIRIN [Suspect]
     Indication: DRUG USE FOR UNKNOWN INDICATION
     Route: 065
  16. ASPIRIN [Suspect]
     Route: 065
  17. PREDNISONE TAB [Concomitant]
     Dates: start: 20090710
  18. AMBIEN [Concomitant]
  19. NOVOLOG [Concomitant]
  20. LANTUS [Concomitant]
  21. PRILOSEC [Concomitant]
  22. DILTIAZEM [Concomitant]
  23. NEPHROCAPS [Concomitant]
  24. RENAGEL [Concomitant]
  25. DOPAMINE HCL [Concomitant]
  26. METOPROLOL [Concomitant]
  27. NORVASC [Concomitant]
  28. CALCIUM CARBONATE [Concomitant]
  29. FERROUS GLUCONATE [Concomitant]
  30. LABETALOL HCL [Concomitant]
  31. ROSUVASTATIN CALCIUM [Concomitant]
  32. AVAPRO [Concomitant]
  33. DILAUDID [Concomitant]
  34. SOLU-MEDROL [Concomitant]
     Dates: start: 20090711
  35. HYDRALAZINE HCL [Concomitant]

REACTIONS (6)
  - BLOOD URINE PRESENT [None]
  - DRUG TOXICITY [None]
  - HAEMOLYTIC ANAEMIA [None]
  - THROMBOCYTOPENIA [None]
  - TRANSPLANT REJECTION [None]
  - TUBULOINTERSTITIAL NEPHRITIS [None]
